FAERS Safety Report 19880077 (Version 1)
Quarter: 2021Q3

REPORT INFORMATION
  Report Type: Spontaneous
  Country: CH (occurrence: CH)
  Receive Date: 20210924
  Receipt Date: 20210924
  Transmission Date: 20211014
  Serious: Yes (Death)
  Sender: FDA-Public Use
  Company Number: CH-ASTRAZENECA-2021A734688

PATIENT
  Age: 28098 Day
  Sex: Male
  Weight: 80 kg

DRUGS (18)
  1. ATORVASTATIN AXAPHARM [Concomitant]
     Active Substance: ATORVASTATIN CALCIUM
     Route: 048
  2. TIROSINT [Concomitant]
     Active Substance: LEVOTHYROXINE SODIUM
     Route: 048
  3. ZOLDOROM [Concomitant]
     Route: 048
  4. LAXOBERON [Concomitant]
     Active Substance: SODIUM PICOSULFATE
  5. TORASEMID [Concomitant]
     Active Substance: TORSEMIDE
     Route: 048
  6. ZYLORIC [Concomitant]
     Active Substance: ALLOPURINOL
     Route: 048
  7. PALEXIA [Concomitant]
     Active Substance: TAPENTADOL HYDROCHLORIDE
  8. ACALABRUTINIB. [Suspect]
     Active Substance: ACALABRUTINIB
     Indication: CHRONIC LYMPHOCYTIC LEUKAEMIA
     Route: 048
     Dates: start: 20210714, end: 20210805
  9. ACIDUM FOLICUM [Concomitant]
     Active Substance: FOLIC ACID
     Route: 048
  10. RELAXANE [Concomitant]
     Route: 048
  11. FOSAVANCE [Concomitant]
     Active Substance: ALENDRONATE SODIUM\CHOLECALCIFEROL
     Route: 048
  12. BEPANTHEN [Concomitant]
  13. FLUCTINE [Concomitant]
     Active Substance: FLUOXETINE HYDROCHLORIDE
     Route: 048
  14. PRADIF T [Concomitant]
     Active Substance: TAMSULOSIN HYDROCHLORIDE
     Route: 048
  15. PRAZINE [Concomitant]
     Route: 048
  16. HYDROCORTISON [HYDROCORTISONE ACETATE] [Concomitant]
     Active Substance: HYDROCORTISONE ACETATE
     Route: 048
  17. MOVICOL [Concomitant]
     Active Substance: POLYETHYLENE GLYCOL 3350\POTASSIUM CHLORIDE\SODIUM BICARBONATE\SODIUM CHLORIDE
  18. VITAMIN D3 [Concomitant]
     Active Substance: CHOLECALCIFEROL
     Route: 048

REACTIONS (1)
  - Folliculitis [Fatal]

NARRATIVE: CASE EVENT DATE: 20210801
